FAERS Safety Report 9071071 (Version 1)
Quarter: 2013Q1

REPORT INFORMATION
  Report Type: Spontaneous
  Country: US (occurrence: US)
  Receive Date: 20130129
  Receipt Date: 20130129
  Transmission Date: 20140127
  Serious: No
  Sender: FDA-Public Use
  Company Number: US-ABBOTT-12P-163-0922536-00

PATIENT
  Age: 18 None
  Sex: Male
  Weight: 81.72 kg

DRUGS (3)
  1. HUMIRA 40 MG/0.8 ML PEN [Suspect]
     Indication: CROHN^S DISEASE
     Dates: start: 201201
  2. ASACOL [Suspect]
     Indication: CROHN^S DISEASE
     Dates: start: 201202
  3. LIALDA [Suspect]
     Indication: CROHN^S DISEASE
     Dates: end: 201202

REACTIONS (6)
  - Rectal haemorrhage [Not Recovered/Not Resolved]
  - Abdominal pain upper [Recovered/Resolved]
  - Asthenia [Recovered/Resolved]
  - Decreased appetite [Recovered/Resolved]
  - Drug dose omission [Recovered/Resolved]
  - Wrong technique in drug usage process [Recovered/Resolved]
